FAERS Safety Report 7864296-6 (Version None)
Quarter: 2011Q4

REPORT INFORMATION
  Report Type: 
  Country: None (occurrence: None)
  Receive Date: 20111028
  Receipt Date: 20110414
  Transmission Date: 20120403
  Serious: No
  Sender: FDA-Public Use
  Company Number: US-GLAXOSMITHKLINE-A0923869A

PATIENT
  Sex: Female

DRUGS (1)
  1. SEREVENT [Suspect]
     Indication: PRODUCT USED FOR UNKNOWN INDICATION
     Dosage: 50MCG UNKNOWN
     Route: 065
     Dates: start: 20070312

REACTIONS (5)
  - POOR QUALITY SLEEP [None]
  - FEELING ABNORMAL [None]
  - PRODUCT TASTE ABNORMAL [None]
  - OVERDOSE [None]
  - DEVICE MISUSE [None]
